FAERS Safety Report 6683114-5 (Version None)
Quarter: 2010Q2

REPORT INFORMATION
  Report Type: 
  Country: None (occurrence: None)
  Receive Date: 20100415
  Receipt Date: 20100407
  Transmission Date: 20101027
  Serious: Yes (Other)
  Sender: FDA-Public Use
  Company Number: JP-MERCK-1003USA04694

PATIENT
  Age: 47 Year
  Sex: Male
  Weight: 100 kg

DRUGS (14)
  1. JANUVIA [Suspect]
     Indication: DIABETES MELLITUS
     Route: 048
     Dates: start: 20100108
  2. AMOXAN [Concomitant]
     Route: 048
  3. NORTRIPTYLINE HCL [Concomitant]
     Route: 048
  4. MELBIN [Concomitant]
     Route: 048
     Dates: start: 20050401
  5. ABILIFY [Concomitant]
     Route: 048
     Dates: start: 20071120
  6. ROXATIDINE ACETATE HYDROCHLORIDE [Concomitant]
     Route: 048
     Dates: start: 20030601
  7. ROXATIDINE ACETATE HYDROCHLORIDE [Concomitant]
     Route: 048
     Dates: start: 20100101
  8. BENZALIN [Concomitant]
     Route: 048
     Dates: start: 19930301
  9. PAXIL [Concomitant]
     Route: 048
     Dates: start: 20030601
  10. VOGLIBOSE [Concomitant]
     Route: 048
     Dates: start: 20050501
  11. FASTIC [Concomitant]
     Route: 048
     Dates: start: 20081107
  12. LEXOTAN [Concomitant]
     Route: 048
  13. CRESTOR [Concomitant]
     Route: 048
  14. BOFU-TSUSHO-SAN [Concomitant]
     Route: 048

REACTIONS (1)
  - ERECTILE DYSFUNCTION [None]
